FAERS Safety Report 7902281-6 (Version None)
Quarter: 2011Q4

REPORT INFORMATION
  Report Type: 
  Country: None (occurrence: None)
  Receive Date: 20111108
  Receipt Date: 20111103
  Transmission Date: 20120403
  Serious: Yes (Hospitalization)
  Sender: FDA-Public Use
  Company Number: US-BAYER-2011-106947

PATIENT
  Age: 62 Year
  Sex: Female

DRUGS (55)
  1. OXYCODONE HCL [Concomitant]
     Dosage: UNK
     Dates: start: 20080804
  2. RAPAMUNE [Concomitant]
     Dosage: UNK
     Dates: start: 20101126
  3. TRAZODONE HYDROCHLORIDE [Concomitant]
     Dosage: UNK
     Dates: start: 20101103
  4. PLAVIX [Concomitant]
     Dosage: UNK
     Dates: start: 20090916
  5. ATENOLOL [Concomitant]
     Dosage: UNK
     Dates: start: 20090630
  6. ZOLPIDEM [Concomitant]
     Dosage: UNK
     Dates: start: 20090402
  7. VITADYE [Concomitant]
     Dosage: UNK
     Dates: start: 20111003
  8. ACETAMINOPHEN AND HYDROCODONE BITARTRATE [Concomitant]
     Dosage: UNK
     Dates: start: 20110920
  9. PROGRAF [Concomitant]
     Dosage: UNK
     Dates: start: 20100706
  10. GABAPENTIN [Concomitant]
     Dosage: UNK
     Dates: start: 20100428
  11. SULFAMETHOXAZOLE AND TRIMETHOPRIM [Concomitant]
     Dosage: UNK
     Dates: start: 20111010
  12. LOVENOX [Concomitant]
     Dosage: UNK
     Dates: start: 20090301
  13. DICLOXACILLIN [Concomitant]
     Dosage: UNK
     Dates: start: 20111018
  14. ACETAMINOPHEN AND HYDROCODONE BITARTRATE [Concomitant]
     Dosage: UNK
     Dates: start: 20110811
  15. FENTANYL [Concomitant]
     Dosage: UNK
     Dates: start: 20110727
  16. CIPRO [Concomitant]
     Dosage: UNK
     Dates: start: 20110727
  17. ASPIRIN [Concomitant]
     Dosage: UNK
     Dates: start: 20110713
  18. METHADONE HCL [Concomitant]
     Dosage: UNK
     Dates: start: 20110708
  19. NIFEDIPINE [Concomitant]
     Dosage: UNK
     Dates: start: 20090611
  20. WARFARIN SODIUM [Concomitant]
     Dosage: UNK
     Dates: start: 20090218
  21. PAROXETINE HCL [Concomitant]
     Dosage: UNK
     Dates: start: 20080721
  22. CEPHALEXIN [Concomitant]
     Dosage: UNK
     Dates: start: 20110829
  23. VENLAFAXINE [Concomitant]
     Dosage: UNK
     Dates: start: 20110602
  24. ATENOLOL [Concomitant]
     Dosage: UNK
     Dates: start: 20110425
  25. OXYCODONE HCL [Concomitant]
     Dosage: UNK
     Dates: start: 20110920
  26. ALENDRONATE SODIUM [Concomitant]
     Dosage: UNK
     Dates: start: 20090317
  27. MYFORTIC [Concomitant]
     Dosage: UNK
     Dates: start: 20111020
  28. NEXIUM [Concomitant]
     Dosage: UNK
     Dates: start: 20110723
  29. METHADONE HCL [Concomitant]
     Dosage: UNK
     Dates: start: 20110707
  30. TRAZODONE HYDROCHLORIDE [Concomitant]
     Dosage: UNK
     Dates: start: 20111007
  31. TRAMADOL HCL [Concomitant]
     Dosage: UNK
     Dates: start: 20100421
  32. SUCRALFATE [Concomitant]
     Dosage: UNK
     Dates: start: 20111004
  33. FENTANYL [Concomitant]
     Dosage: UNK
     Dates: start: 20110928
  34. PREDNISONE [Concomitant]
     Dosage: UNK
     Dates: start: 20100424
  35. SEROQUEL [Concomitant]
     Dosage: UNK
     Dates: start: 20100907
  36. FLUOXETINE HCL [Concomitant]
     Dosage: UNK
     Dates: start: 20100907
  37. OMEPRAZOLE [Concomitant]
     Dosage: UNK
     Dates: start: 20100617
  38. CETAPHIL [CETYL ALCOHOL,PROPYLENE GLYCOL,STEARYL ALCOHOL] [Concomitant]
     Dosage: UNK
     Dates: start: 20111004
  39. BACLOFEN [Concomitant]
     Dosage: UNK
     Dates: start: 20111003
  40. NEXAVAR [Suspect]
     Indication: HEPATIC NEOPLASM MALIGNANT
     Dosage: 1 BID ALTERNATING WITH 1 QD
     Dates: start: 20100405
  41. LEVOFLOXACIN [Concomitant]
     Dosage: UNK
     Dates: start: 20110913
  42. ACETAMINOPHEN AND HYDROCODONE BITARTRATE [Concomitant]
     Dosage: UNK
     Dates: start: 20090123
  43. OXYCODONE HCL [Concomitant]
     Dosage: UNK
     Dates: start: 20110226
  44. RAPAMUNE [Concomitant]
     Dosage: UNK
     Dates: start: 20100706
  45. PREDNISONE [Concomitant]
     Dosage: UNK
     Dates: start: 20101009
  46. SULFAMETHOXAZOLE AND TRIMETHOPRIM [Concomitant]
     Dosage: UNK
     Dates: start: 20100407
  47. SILDENAFIL [Concomitant]
     Dosage: UNK
     Dates: start: 20070907
  48. NICODERM [Concomitant]
  49. LORATADINE [Concomitant]
     Dosage: UNK
     Dates: start: 20111004
  50. FENTANYL [Concomitant]
     Dosage: UNK
     Dates: start: 20101123
  51. ASPIRIN [Concomitant]
     Dosage: UNK
     Dates: start: 20111010
  52. FUROSEMIDE [Concomitant]
     Dosage: UNK
  53. AMLODIPINE BESYLATE [Concomitant]
     Dosage: UNK
     Dates: start: 20111010
  54. ALOE VESTA [Concomitant]
     Dosage: UNK
     Dates: start: 20111010
  55. HALOPERIDOL [Concomitant]
     Dosage: UNK
     Dates: start: 20111010

REACTIONS (3)
  - PSYCHOTIC DISORDER [None]
  - FATIGUE [None]
  - TENDERNESS [None]
